FAERS Safety Report 5518753-8 (Version None)
Quarter: 2007Q4

REPORT INFORMATION
  Report Type: 
  Country: None (occurrence: None)
  Receive Date: 20071113
  Receipt Date: 20071029
  Transmission Date: 20080405
  Serious: Yes (Life-Threatening, Hospitalization)
  Sender: FDA-Public Use
  Company Number: DSA_30750_2007

PATIENT
  Sex: Female

DRUGS (6)
  1. LORAZEPAM [Suspect]
     Dosage: (NOT THE PRESCRIBED AMOUNT ORAL)
     Route: 048
     Dates: start: 20071008, end: 20071008
  2. ASPIRIN [Suspect]
     Dosage: (7.5 G 1X NOT THE PRESCRIBED AMOUNT. ORAL)
     Route: 048
     Dates: start: 20071008, end: 20071008
  3. METOPROLOL TARTRATE [Suspect]
     Dosage: (1.6 G 1X NOT THE PRESCRIBED AMOUNT. ORAL)
     Route: 048
     Dates: start: 20071008, end: 20071008
  4. NORVASC [Suspect]
     Dosage: 80 MG 1X NOT THE PRESCRIBED AMOUNT. ORAL)
     Route: 048
     Dates: start: 20071008, end: 20071008
  5. OLMESARTAN MEDOXOMIL [Suspect]
     Dosage: (560 MG 1X NOT THE PRESCRIBED AMOUNT ORAL)
     Route: 048
     Dates: start: 20071008, end: 20071008
  6. SIMVASTATIN [Suspect]
     Dosage: (200 MG 1X NOT THE PRESCRIBED AMOUNT ORAL)
     Route: 048
     Dates: start: 20071008, end: 20071008

REACTIONS (3)
  - ABDOMINAL PAIN UPPER [None]
  - INTENTIONAL OVERDOSE [None]
  - SOMNOLENCE [None]
